FAERS Safety Report 9892119 (Version 2)
Quarter: 2014Q1

REPORT INFORMATION
  Report Type: Spontaneous
  Country: JP (occurrence: JP)
  Receive Date: 20140212
  Receipt Date: 20140321
  Transmission Date: 20141002
  Serious: Yes (Hospitalization)
  Sender: FDA-Public Use
  Company Number: PHHY2014JP016375

PATIENT
  Age: 76 Year
  Sex: Female

DRUGS (2)
  1. EXELON PATCH [Suspect]
     Indication: DEMENTIA ALZHEIMER^S TYPE
     Dosage: 18 MG, DAILY
     Route: 062
  2. EXELON PATCH [Suspect]
     Dosage: 4.5 MG, DAILY
     Route: 062

REACTIONS (1)
  - Pneumonia aspiration [Unknown]
